FAERS Safety Report 4323067-8 (Version None)
Quarter: 2004Q1

REPORT INFORMATION
  Report Type: 
  Country: None (occurrence: None)
  Receive Date: 20040325
  Receipt Date: 20040316
  Transmission Date: 20041129
  Serious: Yes (Other)
  Sender: FDA-Public Use
  Company Number: 200413175GDDC

PATIENT
  Age: 48 Year
  Sex: Male

DRUGS (5)
  1. NASACORT [Suspect]
     Indication: SINUSITIS
     Dosage: DOSE: 110 (2 SPRAYS)
     Route: 045
     Dates: start: 19980101, end: 19990101
  2. DEXAMETHASONE [Suspect]
     Indication: SINUSITIS
     Dosage: DOSE: 2 SPRAYS
     Route: 045
     Dates: start: 19970101, end: 19970101
  3. BECONASE [Suspect]
     Indication: SINUSITIS
     Dosage: DOSE: 2 SPRAYS
     Route: 045
  4. LOSARTAN [Concomitant]
     Dosage: DOSE: UNK
  5. AMITRIPTYLINE HCL [Concomitant]
     Dosage: DOSE: LOW DOSE

REACTIONS (8)
  - ABDOMINAL PAIN [None]
  - DRUG EFFECT DECREASED [None]
  - GROIN PAIN [None]
  - IMPAIRED WORK ABILITY [None]
  - MUSCLE SPASMS [None]
  - MYALGIA [None]
  - OSTEONECROSIS [None]
  - SLEEP DISORDER [None]
